FAERS Safety Report 7137335-8 (Version None)
Quarter: 2010Q4

REPORT INFORMATION
  Report Type: 
  Country: None (occurrence: None)
  Receive Date: 20101206
  Receipt Date: 20081113
  Transmission Date: 20110411
  Serious: Yes (Death, Other)
  Sender: FDA-Public Use
  Company Number: CA-ACTELION-A-US2008-19509

PATIENT

DRUGS (2)
  1. BOSENTAN TABLET 62.5 MG CD [Suspect]
     Indication: PULMONARY ARTERIAL HYPERTENSION
     Dosage: 62.5 MG, BID
     Route: 048
  2. COUMADIN [Suspect]

REACTIONS (3)
  - DEATH [None]
  - GASTROINTESTINAL HAEMORRHAGE [None]
  - HAEMOGLOBIN DECREASED [None]
